FAERS Safety Report 24645457 (Version 1)
Quarter: 2024Q4

REPORT INFORMATION
  Report Type: Spontaneous
  Country: TW (occurrence: TW)
  Receive Date: 20241121
  Receipt Date: 20241121
  Transmission Date: 20250114
  Serious: No
  Sender: ALKEM
  Company Number: TW-ALKEM LABORATORIES LIMITED-TW-ALKEM-2024-00199

PATIENT

DRUGS (1)
  1. OLANZAPINE [Suspect]
     Active Substance: OLANZAPINE
     Indication: Product used for unknown indication
     Dosage: UNK
     Route: 030

REACTIONS (3)
  - Exhibitionism [Unknown]
  - Hypersexuality [Unknown]
  - Akathisia [Unknown]
